FAERS Safety Report 10166715 (Version 4)
Quarter: 2014Q4

REPORT INFORMATION
  Report Type: Spontaneous
  Country: US (occurrence: None)
  Receive Date: 20140508
  Receipt Date: 20141203
  Transmission Date: 20150528
  Serious: No
  Sender: FDA-Public Use
  Company Number: 2014CT000053

PATIENT
  Age: 65 Year
  Sex: Female
  Weight: 70.31 kg

DRUGS (9)
  1. HYDROXYCHLOROQINE [Concomitant]
  2. WARFARIN [Concomitant]
     Active Substance: WARFARIN
  3. SPIRONOLACTONE. [Concomitant]
     Active Substance: SPIRONOLACTONE
  4. KETOCONAZOLE. [Concomitant]
     Active Substance: KETOCONAZOLE
  5. CYMBALTA [Concomitant]
     Active Substance: DULOXETINE HYDROCHLORIDE
  6. KORLYM [Suspect]
     Active Substance: MIFEPRISTONE
     Indication: PITUITARY-DEPENDENT CUSHING^S SYNDROME
     Route: 048
     Dates: start: 201402, end: 201402
  7. ZETIA [Concomitant]
     Active Substance: EZETIMIBE
  8. LEVOTHYROXINE [Concomitant]
     Active Substance: LEVOTHYROXINE
  9. TRAZODONE [Concomitant]
     Active Substance: TRAZODONE HYDROCHLORIDE

REACTIONS (5)
  - Vaginal discharge [None]
  - Vaginal haemorrhage [None]
  - Weight decreased [None]
  - Weight increased [None]
  - Abdominal pain [None]
